FAERS Safety Report 8624308-9 (Version None)
Quarter: 2012Q3

REPORT INFORMATION
  Report Type: 
  Country: None (occurrence: None)
  Receive Date: 20120827
  Receipt Date: 20120822
  Transmission Date: 20120928
  Serious: Yes (Hospitalization)
  Sender: FDA-Public Use
  Company Number: CA-JNJFOC-20120811391

PATIENT
  Sex: Male
  Weight: 83.92 kg

DRUGS (6)
  1. STELARA [Suspect]
     Indication: PSORIATIC ARTHROPATHY
     Route: 058
     Dates: start: 20110801
  2. ASPIRIN [Concomitant]
  3. PRASUGREL [Concomitant]
  4. LIPITOR [Concomitant]
  5. PERINDOPRIL [Concomitant]
  6. PANTOPRAZOLE [Concomitant]

REACTIONS (1)
  - MYOCARDIAL INFARCTION [None]
